FAERS Safety Report 7931527-3 (Version None)
Quarter: 2011Q4

REPORT INFORMATION
  Report Type: 
  Country: None (occurrence: None)
  Receive Date: 20111121
  Receipt Date: 20111121
  Transmission Date: 20120403
  Serious: Yes (Hospitalization, Other)
  Sender: FDA-Public Use
  Company Number: None

PATIENT
  Age: 94 Year
  Sex: Male
  Weight: 52.163 kg

DRUGS (2)
  1. PROTONIX [Suspect]
     Indication: GASTROOESOPHAGEAL REFLUX DISEASE
     Route: 048
     Dates: start: 20111113, end: 20111116
  2. RANITIDINE HYDROCHLORIDE [Concomitant]
     Indication: GASTROOESOPHAGEAL REFLUX DISEASE
     Dosage: ?
     Route: 048
     Dates: start: 20111102, end: 20111110

REACTIONS (7)
  - APHASIA [None]
  - ASTHENIA [None]
  - SOMNOLENCE [None]
  - SPEECH DISORDER [None]
  - CATATONIA [None]
  - APHAGIA [None]
  - CONDITION AGGRAVATED [None]
